FAERS Safety Report 8804717 (Version 1)
Quarter: 2012Q4

REPORT INFORMATION
  Report Type: Report from Study
  Country: US (occurrence: US)
  Receive Date: 20120924
  Receipt Date: 20120924
  Transmission Date: 20130627
  Serious: No
  Sender: FDA-Public Use
  Company Number: US-VERTEX PHARMACEUTICAL INC.-2012-020391

PATIENT
  Sex: Male
  Weight: 81 kg

DRUGS (6)
  1. VX-950 [Suspect]
     Indication: HEPATITIS C
     Dosage: UNK UNK, tid
     Route: 048
     Dates: start: 20120630
  2. PEGASYS [Suspect]
     Indication: HEPATITIS C
     Dosage: 180 ?g, UNK
     Route: 058
     Dates: start: 20120630
  3. RIBASPHERE [Suspect]
     Indication: HEPATITIS C
     Dosage: UNK UNK, bid
     Dates: start: 20120630
  4. PROPRANOLOL [Concomitant]
     Dosage: UNK, qd
  5. PREVACID [Concomitant]
     Dosage: UNK, qd
  6. MULTIVITAMINS [Concomitant]
     Dosage: UNK, qd

REACTIONS (3)
  - Dizziness [Unknown]
  - Sinusitis [Unknown]
  - Fatigue [Unknown]
